FAERS Safety Report 6398593-0 (Version None)
Quarter: 2009Q4

REPORT INFORMATION
  Report Type: 
  Country: None (occurrence: None)
  Receive Date: 20091013
  Receipt Date: 20090930
  Transmission Date: 20100525
  Serious: Yes (Other)
  Sender: FDA-Public Use
  Company Number: GB-AMGEN-US367318

PATIENT
  Age: 50 Year
  Sex: Male
  Weight: 75 kg

DRUGS (6)
  1. ENBREL [Suspect]
     Indication: RHEUMATOID ARTHRITIS
     Dosage: 50 MG (FREQUENCY UNKNOWN)
     Route: 058
     Dates: start: 20090601, end: 20090801
  2. METHOTREXATE [Concomitant]
     Indication: RHEUMATOID ARTHRITIS
     Dosage: 20 MG (FREQUENCY UNKNOWN)
     Route: 058
     Dates: start: 20010101, end: 20090801
  3. FOLIC ACID [Concomitant]
     Dosage: 5 MG (FREQUENCY UNKNOWN)
     Route: 048
     Dates: start: 20010101
  4. LANSOPRAZOLE [Concomitant]
     Indication: DYSPEPSIA
     Dosage: 30 MG (FREQUENCY UNKNOWN)
     Route: 048
     Dates: start: 20050101
  5. CO-CODAMOL [Concomitant]
     Indication: PAIN
     Dosage: UNKNOWN
     Route: 048
     Dates: start: 20000101
  6. ETORICOXIB [Concomitant]
     Indication: PAIN
     Dosage: 90 MG (FREQUENCY UNKNOWN)
     Route: 048
     Dates: start: 20080101

REACTIONS (4)
  - ALVEOLITIS ALLERGIC [None]
  - CARBON MONOXIDE DIFFUSING CAPACITY DECREASED [None]
  - DYSPNOEA [None]
  - RALES [None]
